FAERS Safety Report 19651050 (Version 3)
Quarter: 2021Q3

REPORT INFORMATION
  Report Type: Report from Study
  Country: None (occurrence: GR)
  Receive Date: 20210802
  Receipt Date: 20210921
  Transmission Date: 20211014
  Serious: Yes (Death, Hospitalization, Other)
  Sender: FDA-Public Use
  Company Number: GR-ABBVIE-21K-066-4017107-00

PATIENT
  Age: 70 Year
  Sex: Male
  Weight: 60 kg

DRUGS (5)
  1. DUODOPA [Suspect]
     Active Substance: CARBIDOPA\LEVODOPA
  2. STALEVO [Concomitant]
     Active Substance: CARBIDOPA\ENTACAPONE\LEVODOPA
     Indication: PARKINSON^S DISEASE
     Dosage: (200+50+200)MG
     Route: 048
  3. ENBREL [Concomitant]
     Active Substance: ETANERCEPT
     Indication: RHEUMATOID ARTHRITIS
  4. DUODOPA [Suspect]
     Active Substance: CARBIDOPA\LEVODOPA
     Indication: PARKINSON^S DISEASE
     Dosage: MORNING DOSE: 11.8 ML; CONTINUOUS RATE: 3.6 ML/H; EXTRA DOSE: 1.6 ML
     Route: 050
     Dates: start: 20200629
  5. SEROPRAM [Concomitant]
     Indication: DEPRESSION
     Route: 048

REACTIONS (10)
  - Respiratory tract infection [Not Recovered/Not Resolved]
  - Myocardial infarction [Fatal]
  - Vomiting [Unknown]
  - General physical health deterioration [Unknown]
  - Loss of consciousness [Not Recovered/Not Resolved]
  - Cerebrovascular accident [Unknown]
  - Oxygen saturation decreased [Not Recovered/Not Resolved]
  - Apnoea [Not Recovered/Not Resolved]
  - Epilepsy [Not Recovered/Not Resolved]
  - Parenteral nutrition [Not Recovered/Not Resolved]

NARRATIVE: CASE EVENT DATE: 202107
